FAERS Safety Report 16336802 (Version 1)
Quarter: 2019Q2

REPORT INFORMATION
  Report Type: Spontaneous
  Country: GB (occurrence: GB)
  Receive Date: 20190521
  Receipt Date: 20190521
  Transmission Date: 20190711
  Serious: Yes (Life-Threatening, Hospitalization)
  Sender: FDA-Public Use
  Company Number: GB-ASTRAZENECA-2019SE74279

PATIENT
  Age: 73 Year
  Sex: Male

DRUGS (1)
  1. OMEPRAZOLE. [Suspect]
     Active Substance: OMEPRAZOLE
     Dosage: TAKEN FOR A LONG TIME
     Route: 048

REACTIONS (6)
  - Hypoparathyroidism secondary [Recovered/Resolved]
  - Blood phosphorus increased [Recovered/Resolved]
  - Hypocalcaemia [Recovered/Resolved]
  - Epilepsy [Recovered/Resolved]
  - Blood potassium decreased [Recovered/Resolved]
  - Blood magnesium decreased [Recovered/Resolved]
